FAERS Safety Report 6188482-9 (Version None)
Quarter: 2009Q2

REPORT INFORMATION
  Report Type: 
  Country: None (occurrence: None)
  Receive Date: 20090513
  Receipt Date: 20090501
  Transmission Date: 20091009
  Serious: Yes (Other)
  Sender: FDA-Public Use
  Company Number: CA-PFIZER INC-2008028986

PATIENT
  Age: 46 Year

DRUGS (6)
  1. CHAMPIX [Suspect]
     Indication: SMOKING CESSATION THERAPY
     Dosage: UNK
     Dates: start: 20071113, end: 20071114
  2. ARTHROTEC [Concomitant]
     Dosage: 50MG/200MG
  3. CITALOPRAM HYDROBROMIDE [Concomitant]
     Dosage: 20 MG, UNK
  4. LIPITOR [Concomitant]
     Dosage: 20 MG, UNK
  5. ZYPREXA [Concomitant]
     Dosage: 15 MG, UNK
  6. DIOVAN [Concomitant]
     Dosage: 80 MG, UNK

REACTIONS (5)
  - CONFUSIONAL STATE [None]
  - DEPRESSION [None]
  - FATIGUE [None]
  - FEELING ABNORMAL [None]
  - SUICIDAL IDEATION [None]
